FAERS Safety Report 10636984 (Version 4)
Quarter: 2020Q2

REPORT INFORMATION
  Report Type: Report from Study
  Country: GB (occurrence: GB)
  Receive Date: 20141208
  Receipt Date: 20200504
  Transmission Date: 20200713
  Serious: Yes (Hospitalization)
  Sender: FDA-Public Use
  Company Number: GB-ROCHE-1501257

PATIENT
  Age: 40 Year
  Sex: Male
  Weight: 120.6 kg

DRUGS (23)
  1. CODEINE [Concomitant]
     Active Substance: CODEINE
     Indication: ANALGESIC THERAPY
     Route: 048
     Dates: start: 20130531, end: 20130624
  2. ACICLOVIR [Concomitant]
     Active Substance: ACYCLOVIR
  3. RITUXIMAB. [Suspect]
     Active Substance: RITUXIMAB
     Indication: ACUTE LYMPHOCYTIC LEUKAEMIA
     Route: 042
     Dates: start: 20130613
  4. DEXAMETHASONE. [Concomitant]
     Active Substance: DEXAMETHASONE
     Route: 048
     Dates: start: 20130607, end: 20130610
  5. PEGASPARGASE [Suspect]
     Active Substance: PEGASPARGASE
     Indication: ACUTE LYMPHOCYTIC LEUKAEMIA
     Route: 042
     Dates: start: 20130614
  6. CHLORHEXIDINE [Concomitant]
     Active Substance: CHLORHEXIDINE
     Route: 048
     Dates: start: 20130610
  7. PARACETAMOL [Concomitant]
     Active Substance: ACETAMINOPHEN
     Indication: ANALGESIC THERAPY
     Route: 048
     Dates: start: 20130531, end: 20130705
  8. MACROGOL [Concomitant]
     Active Substance: POLYETHYLENE GLYCOLS
     Indication: CONSTIPATION
     Route: 048
     Dates: start: 20130619
  9. BENZYDAMINE [Concomitant]
     Active Substance: BENZYDAMINE
     Route: 048
     Dates: start: 20130621, end: 20130705
  10. DEXAMETHASONE. [Concomitant]
     Active Substance: DEXAMETHASONE
     Route: 048
     Dates: start: 20130618, end: 20130621
  11. ITRACONAZOLE. [Concomitant]
     Active Substance: ITRACONAZOLE
     Route: 048
     Dates: start: 20130531, end: 20130610
  12. ALLOPURINOL. [Concomitant]
     Active Substance: ALLOPURINOL
     Route: 048
     Dates: start: 20130601, end: 20130705
  13. DOCUSATE [Concomitant]
     Active Substance: DOCUSATE
     Indication: CONSTIPATION
     Route: 048
     Dates: start: 20130614
  14. SENNA [Concomitant]
     Active Substance: SENNA LEAF\SENNOSIDES\SENNOSIDES A AND B
     Indication: CONSTIPATION
     Route: 048
     Dates: start: 20130614
  15. VINCRISTINE [Concomitant]
     Active Substance: VINCRISTINE
     Indication: ACUTE LYMPHOCYTIC LEUKAEMIA
     Route: 042
     Dates: start: 20130611, end: 20130702
  16. DAUNORUBICIN [Concomitant]
     Active Substance: DAUNORUBICIN
     Indication: ACUTE LYMPHOCYTIC LEUKAEMIA
     Route: 042
     Dates: start: 20130611, end: 20130702
  17. SULFAMETHOXAZOLE;TRIMIPRAMINE [Concomitant]
     Route: 048
     Dates: start: 20130603, end: 20130610
  18. ONDANSETRON [Concomitant]
     Active Substance: ONDANSETRON
     Indication: NAUSEA
     Route: 048
     Dates: start: 20130531
  19. HYOSCINE [Concomitant]
     Active Substance: SCOPOLAMINE
     Indication: NAUSEA
     Route: 048
     Dates: start: 20130608, end: 20130705
  20. SANDOCAL [CALCIUM CARBONATE;CALCIUM LACTATE GLUCONATE] [Concomitant]
     Dosage: 3 UNIT NOT PROVIDED
     Route: 048
     Dates: start: 20130612, end: 20130705
  21. OMEPRAZOLE. [Concomitant]
     Active Substance: OMEPRAZOLE
     Route: 065
     Dates: start: 20130601
  22. CHLORHEXIDINE [Concomitant]
     Active Substance: CHLORHEXIDINE
     Route: 048
     Dates: start: 20130531, end: 20130610
  23. AMPHOTERICIN [Concomitant]
     Active Substance: AMPHOTERICIN B
     Route: 065
     Dates: start: 20130612

REACTIONS (1)
  - Embolism [Recovered/Resolved]

NARRATIVE: CASE EVENT DATE: 20130623
